FAERS Safety Report 4760806-6 (Version None)
Quarter: 2005Q3

REPORT INFORMATION
  Report Type: 
  Country: None (occurrence: None)
  Receive Date: 20050826
  Receipt Date: 20041013
  Transmission Date: 20060218
  Serious: Yes (Hospitalization, Other)
  Sender: FDA-Public Use
  Company Number: USA-2004-0016745

PATIENT

DRUGS (1)
  1. OXYCONTIN [Suspect]

REACTIONS (5)
  - DRUG ABUSER [None]
  - ILL-DEFINED DISORDER [None]
  - OVERDOSE [None]
  - TREMOR [None]
  - VOMITING [None]
